FAERS Safety Report 25632515 (Version 1)
Quarter: 2025Q3

REPORT INFORMATION
  Report Type: Spontaneous
  Country: US (occurrence: None)
  Receive Date: 20250731
  Receipt Date: 20250731
  Transmission Date: 20251020
  Serious: Yes (Other)
  Sender: FDA-CTU
  Company Number: None

PATIENT
  Age: 76 Year
  Sex: Female
  Weight: 71.1 kg

DRUGS (2)
  1. FLEXBUMIN [Suspect]
     Active Substance: ALBUMIN HUMAN
     Indication: Kidney transplant rejection
     Route: 041
     Dates: start: 20250721, end: 20250730
  2. FLEXBUMIN [Suspect]
     Active Substance: ALBUMIN HUMAN
     Indication: Kidney transplant rejection
     Route: 041
     Dates: start: 20250721, end: 20250730

REACTIONS (3)
  - Flushing [None]
  - Feeling hot [None]
  - Infusion related reaction [None]

NARRATIVE: CASE EVENT DATE: 20250722
